FAERS Safety Report 6117463-6 (Version None)
Quarter: 2009Q1

REPORT INFORMATION
  Report Type: 
  Country: None (occurrence: None)
  Receive Date: 20090314
  Receipt Date: 20090122
  Transmission Date: 20090719
  Serious: No
  Sender: FDA-Public Use
  Company Number: US-ABBOTT-09P-163-0498852-00

PATIENT
  Sex: Female
  Weight: 74.456 kg

DRUGS (6)
  1. HUMIRA [Suspect]
     Indication: RHEUMATOID ARTHRITIS
     Dates: start: 20090109
  2. HUMIRA [Suspect]
     Indication: GOUT
  3. VIOXX [Concomitant]
     Indication: GASTRIC INFECTION
     Dates: start: 20081001
  4. OXYGEN [Concomitant]
     Indication: ACUTE RESPIRATORY DISTRESS SYNDROME
     Dosage: 24 HOURS PER DAY
  5. OXYGEN [Concomitant]
     Indication: CHRONIC OBSTRUCTIVE PULMONARY DISEASE
  6. OXYGEN [Concomitant]
     Indication: EMPHYSEMA

REACTIONS (4)
  - EAR INFECTION [None]
  - INJECTION SITE IRRITATION [None]
  - MIDDLE EAR EFFUSION [None]
  - PNEUMONIA [None]
